FAERS Safety Report 5045937-8 (Version None)
Quarter: 2006Q3

REPORT INFORMATION
  Report Type: 
  Country: None (occurrence: None)
  Receive Date: 20060710
  Receipt Date: 20060629
  Transmission Date: 20061208
  Serious: Yes (Life-Threatening, Hospitalization)
  Sender: FDA-Public Use
  Company Number: DE-JNJFOC-20060606518

PATIENT
  Sex: Female
  Weight: 54.8 kg

DRUGS (3)
  1. RISPERDAL [Suspect]
     Indication: CONFUSIONAL STATE
     Route: 048
     Dates: start: 20060427, end: 20060503
  2. NIFEDIPINE [Suspect]
     Indication: HYPERTENSION
     Route: 048
  3. MELNEURIN [Concomitant]
     Indication: CONFUSIONAL STATE
     Route: 048

REACTIONS (3)
  - AGRANULOCYTOSIS [None]
  - FEBRILE INFECTION [None]
  - HOSPITALISATION [None]
